FAERS Safety Report 10237118 (Version 2)
Quarter: 2014Q2

REPORT INFORMATION
  Report Type: Report from Study
  Country: US (occurrence: US)
  Receive Date: 20140613
  Receipt Date: 20140613
  Transmission Date: 20141212
  Serious: Yes (Other)
  Sender: FDA-Public Use
  Company Number: US-ABBVIE-13P-163-1112761-00

PATIENT
  Age: 29 Year
  Sex: Male

DRUGS (2)
  1. HUMIRA [Suspect]
     Indication: PSORIASIS
     Dates: start: 2011
  2. HUMIRA [Suspect]
     Indication: PSORIASIS

REACTIONS (12)
  - Tendon rupture [Recovered/Resolved]
  - Psoriasis [Not Recovered/Not Resolved]
  - Injection site pain [Unknown]
  - Injection site pain [Unknown]
  - Incorrect dose administered [Unknown]
  - Injection site swelling [Recovered/Resolved]
  - Injection site pain [Recovered/Resolved]
  - Incorrect dose administered [Recovered/Resolved]
  - Device malfunction [Recovered/Resolved]
  - Injection site papule [Recovered/Resolved]
  - Drug ineffective [Unknown]
  - Psoriasis [Unknown]
